FAERS Safety Report 7454757-6 (Version None)
Quarter: 2011Q2

REPORT INFORMATION
  Report Type: 
  Country: None (occurrence: None)
  Receive Date: 20110503
  Receipt Date: 20100524
  Transmission Date: 20111010
  Serious: No
  Sender: FDA-Public Use
  Company Number: US-PFIZER INC-2010065716

PATIENT
  Sex: Female
  Weight: 81.633 kg

DRUGS (5)
  1. WELLBUTRIN [Concomitant]
     Indication: DEPRESSION
  2. MEDROXYPROGESTERONE ACETATE [Suspect]
     Indication: MENOPAUSAL SYMPTOMS
  3. MEDROXYPROGESTERONE ACETATE [Suspect]
     Indication: CONTRACEPTION
     Dosage: 150 MG, UNK
     Route: 030
     Dates: start: 20100308
  4. WELLBUTRIN [Concomitant]
     Indication: MOOD SWINGS
     Dosage: 75 MG, UNK
  5. VITAMINS [Concomitant]
     Dosage: UNK

REACTIONS (2)
  - MENORRHAGIA [None]
  - ABDOMINAL PAIN [None]
